FAERS Safety Report 7342677-7 (Version None)
Quarter: 2011Q1

REPORT INFORMATION
  Report Type: 
  Country: None (occurrence: None)
  Receive Date: 20110310
  Receipt Date: 20110304
  Transmission Date: 20110831
  Serious: Yes (Other)
  Sender: FDA-Public Use
  Company Number: US-PFIZER INC-2010173799

PATIENT
  Sex: Female
  Weight: 52.608 kg

DRUGS (9)
  1. CITRACAL + D [Concomitant]
  2. TOPROL-XL [Concomitant]
     Indication: HYPERTENSION
     Dosage: 12.5 MG, 1X/DAY
     Route: 048
  3. PERCOCET [Concomitant]
     Indication: PAIN
     Dosage: UNK
  4. WARFARIN SODIUM [Concomitant]
     Indication: PULMONARY EMBOLISM
     Dosage: UNK
  5. PARAFON FORTE DSC [Concomitant]
     Indication: MUSCLE SPASMS
     Dosage: UNK
  6. ACETYLSALICYLIC ACID [Concomitant]
     Indication: MYOCARDIAL INFARCTION
     Dosage: 81 MG, 1X/DAY
     Route: 048
  7. PLAVIX [Concomitant]
     Indication: MYOCARDIAL INFARCTION
     Dosage: 75 MG, 1X/DAY
     Route: 048
  8. LIPITOR [Concomitant]
     Indication: BLOOD CHOLESTEROL ABNORMAL
     Dosage: 20 MG, 1X/DAY
     Route: 048
  9. CELEBREX [Suspect]
     Indication: HIP FRACTURE
     Dosage: 200 MG, 1X/DAY
     Route: 048
     Dates: start: 20101117, end: 20101215

REACTIONS (3)
  - DEPRESSION [None]
  - FATIGUE [None]
  - ABNORMAL LOSS OF WEIGHT [None]
